FAERS Safety Report 9275297 (Version 1)
Quarter: 2013Q2

REPORT INFORMATION
  Report Type: Spontaneous
  Country: US (occurrence: None)
  Receive Date: 20130501
  Receipt Date: 20130501
  Transmission Date: 20140414
  Serious: Yes (Other)
  Sender: FDA-Public Use
  Company Number: None

PATIENT
  Age: 27 Year
  Sex: Female
  Weight: 86.18 kg

DRUGS (1)
  1. SERTRALINE 50MG CAMBER P [Suspect]
     Indication: DEPRESSION
     Route: 048
     Dates: start: 200201, end: 200206

REACTIONS (1)
  - Treatment failure [None]
